FAERS Safety Report 14627760 (Version 1)
Quarter: 2018Q1

REPORT INFORMATION
  Report Type: Spontaneous
  Country: GB (occurrence: GB)
  Receive Date: 20180312
  Receipt Date: 20180312
  Transmission Date: 20180509
  Serious: Yes (Hospitalization)
  Sender: FDA-Public Use
  Company Number: GB-MYLANLABS-2018M1014772

PATIENT
  Age: 87 Year
  Sex: Female

DRUGS (2)
  1. ATORVASTATIN [Concomitant]
     Active Substance: ATORVASTATIN
     Indication: PRODUCT USED FOR UNKNOWN INDICATION
  2. OMEPRAZOLE. [Suspect]
     Active Substance: OMEPRAZOLE
     Indication: DYSPEPSIA
     Dosage: 10 MG, QD
     Dates: start: 20171001, end: 20180101

REACTIONS (4)
  - Depressed level of consciousness [Unknown]
  - Balance disorder [Unknown]
  - Speech disorder [Recovered/Resolved]
  - Memory impairment [Recovering/Resolving]
